FAERS Safety Report 19596754 (Version 2)
Quarter: 2021Q3

REPORT INFORMATION
  Report Type: Spontaneous
  Country: GR (occurrence: GR)
  Receive Date: 20210722
  Receipt Date: 20210811
  Transmission Date: 20211014
  Serious: Yes (Other)
  Sender: FDA-Public Use
  Company Number: GR-MYLANLABS-2021M1043673

PATIENT
  Age: 58 Year
  Sex: Female

DRUGS (2)
  1. DEXAMETHASONE. [Suspect]
     Active Substance: DEXAMETHASONE
     Indication: HYPERSENSITIVITY
     Dosage: UNK
     Dates: start: 20180417
  2. XOZAL [Suspect]
     Active Substance: LEVOCETIRIZINE
     Indication: PRODUCT USED FOR UNKNOWN INDICATION
     Dosage: UNK
     Dates: end: 20180417

REACTIONS (10)
  - Hypersensitivity [Recovering/Resolving]
  - Craniofacial deformity [Recovering/Resolving]
  - Blood glucose increased [Recovering/Resolving]
  - Heart rate increased [Recovering/Resolving]
  - Oropharyngeal discomfort [Recovering/Resolving]
  - Swelling face [Recovering/Resolving]
  - Deformity [Recovering/Resolving]
  - Contusion [Recovering/Resolving]
  - Pharyngeal swelling [Recovering/Resolving]
  - Blood pressure increased [Recovering/Resolving]

NARRATIVE: CASE EVENT DATE: 20180417
